FAERS Safety Report 8507239-4 (Version None)
Quarter: 2012Q3

REPORT INFORMATION
  Report Type: 
  Country: None (occurrence: None)
  Receive Date: 20120712
  Receipt Date: 20120704
  Transmission Date: 20120928
  Serious: Yes (Life-Threatening, Hospitalization)
  Sender: FDA-Public Use
  Company Number: RU-SANOFI-AVENTIS-2012SA047346

PATIENT
  Age: 66 Year
  Sex: Female

DRUGS (2)
  1. ACETYLSALICYLIC ACID/MAGNESIUM [Concomitant]
     Indication: THROMBOSIS PROPHYLAXIS
     Route: 048
     Dates: start: 20111101, end: 20120703
  2. CLOPIDOGREL [Suspect]
     Indication: THROMBOSIS PROPHYLAXIS
     Route: 048
     Dates: start: 20111101

REACTIONS (3)
  - CORONARY ARTERY RESTENOSIS [None]
  - CONTUSION [None]
  - CARDIAC DISORDER [None]
